FAERS Safety Report 4788272-5 (Version None)
Quarter: 2005Q4

REPORT INFORMATION
  Report Type: 
  Country: None (occurrence: None)
  Receive Date: 20051004
  Receipt Date: 20051004
  Transmission Date: 20060501
  Serious: Yes (Hospitalization)
  Sender: FDA-Public Use
  Company Number: None

PATIENT
  Age: 79 Year
  Sex: Female
  Weight: 65 kg

DRUGS (3)
  1. QUININE [Suspect]
     Indication: RESTLESS LEGS SYNDROME
     Dosage: PO DAILY
     Route: 048
  2. PLATELET PHORESIS [Concomitant]
  3. SOLU-MEDROL [Concomitant]

REACTIONS (4)
  - CONTUSION [None]
  - HAEMOGLOBIN DECREASED [None]
  - PETECHIAE [None]
  - PLATELET COUNT DECREASED [None]
